FAERS Safety Report 20254570 (Version 3)
Quarter: 2022Q1

REPORT INFORMATION
  Report Type: Spontaneous
  Country: US (occurrence: None)
  Receive Date: 20211230
  Receipt Date: 20220302
  Transmission Date: 20220424
  Serious: No
  Sender: FDA-Public Use
  Company Number: 2021A872634

PATIENT
  Age: 785 Month
  Sex: Male
  Weight: 154.2 kg

DRUGS (2)
  1. BYDUREON BCISE [Suspect]
     Active Substance: EXENATIDE
     Indication: Type 2 diabetes mellitus
     Dosage: 2MG/ML ONCE A WEEK
     Route: 058
     Dates: start: 2021
  2. BYDUREON [Suspect]
     Active Substance: EXENATIDE
     Indication: Diabetes mellitus
     Route: 058

REACTIONS (8)
  - Rhinorrhoea [Not Recovered/Not Resolved]
  - Eye haemorrhage [Unknown]
  - Glycosylated haemoglobin increased [Unknown]
  - Dysphagia [Not Recovered/Not Resolved]
  - Asthma [Not Recovered/Not Resolved]
  - Device delivery system issue [Unknown]
  - Blood glucose decreased [Not Recovered/Not Resolved]
  - Device leakage [Unknown]

NARRATIVE: CASE EVENT DATE: 20210101
